FAERS Safety Report 4517273-7 (Version None)
Quarter: 2004Q4

REPORT INFORMATION
  Report Type: 
  Country: None (occurrence: None)
  Receive Date: 20041008
  Receipt Date: 20040716
  Transmission Date: 20050328
  Serious: No
  Sender: FDA-Public Use
  Company Number: 2004S1000151

PATIENT
  Age: 83 Year
  Sex: Female

DRUGS (6)
  1. CUBICIN [Suspect]
     Indication: IMPLANT SITE INFECTION
     Dosage: 4 MG/KG; Q24H; IV
     Route: 042
     Dates: start: 20040601, end: 20040601
  2. RIFAMPICIN [Concomitant]
  3. WARFARIN SODIUM [Concomitant]
  4. LEVOTHYROXINE SODIUM [Concomitant]
  5. ATENOLOL [Concomitant]
  6. FUROSEMIDE [Concomitant]

REACTIONS (1)
  - RASH [None]
